FAERS Safety Report 8966861 (Version 2)
Quarter: 2012Q4

REPORT INFORMATION
  Report Type: 
  Country: US (occurrence: US)
  Receive Date: 20121214
  Receipt Date: 20121220
  Transmission Date: 20130627
  Serious: Yes (Hospitalization)
  Sender: FDA-Public Use
  Company Number: CHPA2012US025027

PATIENT
  Sex: Female

DRUGS (1)
  1. VOLTAREN GEL [Suspect]
     Indication: CONTUSION
     Dosage: Unk, Unk
     Route: 061

REACTIONS (5)
  - Pneumonia [Recovered/Resolved]
  - Therapeutic response unexpected [Unknown]
  - Off label use [Unknown]
  - Drug dispensing error [Unknown]
  - Drug administered at inappropriate site [Unknown]
